FAERS Safety Report 16521455 (Version 1)
Quarter: 2019Q3

REPORT INFORMATION
  Report Type: Spontaneous
  Country: FR (occurrence: FR)
  Receive Date: 20190702
  Receipt Date: 20190702
  Transmission Date: 20191004
  Serious: Yes (Hospitalization, Other)
  Sender: FDA-Public Use
  Company Number: FR-MYLANLABS-2019M1060730

PATIENT
  Age: 55 Year
  Sex: Female
  Weight: 64 kg

DRUGS (3)
  1. VENLAFAXINE [Suspect]
     Active Substance: VENLAFAXINE HYDROCHLORIDE
     Indication: DEPRESSION
     Dosage: 75 MILLIGRAM
     Route: 065
  2. VENLAFAXINE [Suspect]
     Active Substance: VENLAFAXINE HYDROCHLORIDE
     Dosage: 225 MILLIGRAM, QD
     Route: 048
     Dates: start: 201110, end: 20160823
  3. PLEGRIDY [Suspect]
     Active Substance: PEGINTERFERON BETA-1A
     Indication: MULTIPLE SCLEROSIS
     Dosage: 125 MILLIGRAM
     Route: 058
     Dates: start: 201601, end: 20160818

REACTIONS (2)
  - Amnesia [Unknown]
  - Chorea [Not Recovered/Not Resolved]

NARRATIVE: CASE EVENT DATE: 20160820
